FAERS Safety Report 10596971 (Version 1)
Quarter: 2014Q4

REPORT INFORMATION
  Report Type: Spontaneous
  Country: ES (occurrence: ES)
  Receive Date: 20141120
  Receipt Date: 20141120
  Transmission Date: 20150529
  Serious: Yes (Other)
  Sender: FDA-Public Use
  Company Number: PHHY2014ES148527

PATIENT
  Age: 33 Year
  Sex: Male

DRUGS (3)
  1. BEMIPARIN SODIUM [Suspect]
     Active Substance: BEMIPARIN SODIUM
     Indication: PRODUCT USED FOR UNKNOWN INDICATION
     Route: 065
  2. ENOXAPARIN [Suspect]
     Active Substance: ENOXAPARIN
     Indication: PRODUCT USED FOR UNKNOWN INDICATION
     Route: 058
  3. ANTIHISTAMINES [Concomitant]
     Active Substance: ANTIHISTAMINES NOS
     Indication: PRODUCT USED FOR UNKNOWN INDICATION
     Route: 065

REACTIONS (7)
  - Hypotension [Unknown]
  - Type I hypersensitivity [Unknown]
  - Cross sensitivity reaction [Unknown]
  - Dyspnoea [Unknown]
  - Anaphylactic reaction [Unknown]
  - Tachycardia [Unknown]
  - Urticaria [Recovered/Resolved]
